FAERS Safety Report 20054196 (Version 1)
Quarter: 2021Q4

REPORT INFORMATION
  Report Type: Spontaneous
  Country: US (occurrence: None)
  Receive Date: 20211109
  Receipt Date: 20211109
  Transmission Date: 20220303
  Serious: No
  Sender: FDA-Public Use
  Company Number: None

PATIENT
  Age: 57 Year
  Sex: Female

DRUGS (1)
  1. DUPIXENT [Suspect]
     Active Substance: DUPILUMAB
     Indication: Asthma
     Dosage: OTHER QUANTITY : 300MG/2ML;?FREQUENCY : EVERY OTHER WEEK;?
     Route: 058

REACTIONS (3)
  - Injection site pain [None]
  - Needle issue [None]
  - Injection site discomfort [None]

NARRATIVE: CASE EVENT DATE: 20211109
